FAERS Safety Report 16925717 (Version 1)
Quarter: 2019Q4

REPORT INFORMATION
  Report Type: Spontaneous
  Country: GB (occurrence: GB)
  Receive Date: 20191016
  Receipt Date: 20191016
  Transmission Date: 20200122
  Serious: Yes (Life-Threatening)
  Sender: FDA-Public Use
  Company Number: GB-MYLANLABS-2019M1097159

PATIENT
  Age: 59 Year
  Sex: Female
  Weight: 55 kg

DRUGS (6)
  1. ERLOTINIB [Suspect]
     Active Substance: ERLOTINIB
     Indication: LUNG ADENOCARCINOMA STAGE IV
     Dosage: 100 MILLIGRAM
     Route: 048
     Dates: start: 20100901
  2. TINZAPARIN [Concomitant]
     Active Substance: TINZAPARIN
     Dosage: UNK
  3. ZOLEDRONIC ACID [Concomitant]
     Active Substance: ZOLEDRONIC ACID
     Dosage: UNK
  4. CLONAZEPAM. [Concomitant]
     Active Substance: CLONAZEPAM
     Dosage: UNK
  5. KEPPRA [Concomitant]
     Active Substance: LEVETIRACETAM
     Dosage: UNK
  6. LOFEPRAMINE [Concomitant]
     Active Substance: LOFEPRAMINE
     Dosage: UNK

REACTIONS (2)
  - Cardiomyopathy [Not Recovered/Not Resolved]
  - Lethargy [Not Recovered/Not Resolved]

NARRATIVE: CASE EVENT DATE: 20180301
